FAERS Safety Report 20379283 (Version 1)
Quarter: 2022Q1

REPORT INFORMATION
  Report Type: Spontaneous
  Country: US (occurrence: None)
  Receive Date: 20220126
  Receipt Date: 20220126
  Transmission Date: 20220423
  Serious: Yes (Hospitalization, Other)
  Sender: FDA-Public Use
  Company Number: None

PATIENT
  Age: 66 Year
  Sex: Male
  Weight: 90 kg

DRUGS (6)
  1. SOTROVIMAB [Suspect]
     Active Substance: SOTROVIMAB
     Indication: COVID-19
     Dosage: OTHER FREQUENCY : ONCE;?
     Route: 041
     Dates: start: 20220121, end: 20220121
  2. ALBUTEROL SULFATE [Concomitant]
     Active Substance: ALBUTEROL SULFATE
     Dates: start: 20171102
  3. ATORVASTATIN [Concomitant]
     Active Substance: ATORVASTATIN
     Dates: start: 20150601
  4. FLUTICASONE [Concomitant]
     Active Substance: FLUTICASONE
     Dates: start: 20191213
  5. GABAPENTIN [Concomitant]
     Active Substance: GABAPENTIN
     Dates: start: 20181226
  6. multi-minerals/FA/lycopene [Concomitant]

REACTIONS (10)
  - Cough [None]
  - Dyspnoea [None]
  - Oropharyngeal pain [None]
  - Hypophagia [None]
  - Sputum discoloured [None]
  - Ear pain [None]
  - Hypocalcaemia [None]
  - Supraventricular tachycardia [None]
  - Oxygen saturation decreased [None]
  - Hypertension [None]

NARRATIVE: CASE EVENT DATE: 20220121
